FAERS Safety Report 6552837-0 (Version None)
Quarter: 2010Q1

REPORT INFORMATION
  Report Type: 
  Country: None (occurrence: None)
  Receive Date: 20100121
  Receipt Date: 20100107
  Transmission Date: 20100710
  Serious: Yes (Other)
  Sender: FDA-Public Use
  Company Number: 2010AL000244

PATIENT
  Age: 45 Year
  Sex: Male

DRUGS (3)
  1. PHENYTOIN [Suspect]
     Indication: EPILEPSY
     Dosage: 275 MG; QD; PO
     Route: 048
     Dates: start: 20090201
  2. VIMPAT [Concomitant]
  3. VALPROIC ACID [Concomitant]

REACTIONS (3)
  - DIPLOPIA [None]
  - DRUG LEVEL FLUCTUATING [None]
  - VISION BLURRED [None]
